FAERS Safety Report 6277872-1 (Version None)
Quarter: 2009Q3

REPORT INFORMATION
  Report Type: 
  Country: None (occurrence: None)
  Receive Date: 20090722
  Receipt Date: 20090715
  Transmission Date: 20100115
  Serious: Yes (Hospitalization)
  Sender: FDA-Public Use
  Company Number: JP-WYE-H10190809

PATIENT

DRUGS (1)
  1. ZOSYN [Suspect]
     Dosage: UNKNOWN
     Route: 041

REACTIONS (1)
  - GENERALISED ERYTHEMA [None]
